FAERS Safety Report 7675803-0 (Version None)
Quarter: 2011Q3

REPORT INFORMATION
  Report Type: 
  Country: None (occurrence: None)
  Receive Date: 20110810
  Receipt Date: 20110802
  Transmission Date: 20111222
  Serious: Yes (Hospitalization)
  Sender: FDA-Public Use
  Company Number: US-ASTRAZENECA-2011SE46216

PATIENT
  Age: 88 Year
  Sex: Female

DRUGS (6)
  1. LISINOPRIL [Suspect]
     Route: 048
  2. CHLORTHALIDONE [Suspect]
  3. METOPROLOL TARTRATE [Suspect]
  4. DILTIAZEM [Suspect]
     Route: 048
  5. CLONIDINE [Suspect]
     Route: 062
  6. HYDRALAZINE HCL [Concomitant]

REACTIONS (3)
  - SYNCOPE [None]
  - FATIGUE [None]
  - NODAL RHYTHM [None]
